FAERS Safety Report 4458317-0 (Version None)
Quarter: 2004Q3

REPORT INFORMATION
  Report Type: 
  Country: None (occurrence: None)
  Receive Date: 20040924
  Receipt Date: 20040914
  Transmission Date: 20050211
  Serious: Yes (Other)
  Sender: FDA-Public Use
  Company Number: JP-BRISTOL-MYERS SQUIBB COMPANY-12711016

PATIENT
  Age: 68 Year
  Sex: Female

DRUGS (9)
  1. GATIFLO TABS 100 MG [Suspect]
     Indication: NEUROGENIC BLADDER
     Route: 048
     Dates: start: 20040702, end: 20040707
  2. GATIFLO TABS 100 MG [Suspect]
     Indication: CYSTITIS
     Route: 048
     Dates: start: 20040702, end: 20040707
  3. DAONIL [Concomitant]
     Route: 048
     Dates: start: 20040629, end: 20040702
  4. GLIMICRON [Concomitant]
     Dosage: THERAPY INTERRUPTED FROM 04-JUL-2004 TO 07-JUL-2004
     Route: 048
     Dates: start: 20040612, end: 20040726
  5. 8-HOUR BAYER [Concomitant]
     Route: 048
     Dates: start: 20040620, end: 20040726
  6. DIOVAN [Concomitant]
     Route: 048
     Dates: start: 20040620, end: 20040726
  7. NITRODERM [Concomitant]
     Route: 061
     Dates: start: 20040614, end: 20040726
  8. SIGMART [Concomitant]
     Route: 048
     Dates: start: 20040621, end: 20040726
  9. ACTOS [Concomitant]
     Dosage: THERAPY INTERRUPTED FROM 04-JUL-2004 TO 12-JUL-2004
     Route: 048
     Dates: start: 20040703, end: 20040726

REACTIONS (2)
  - HYPERGLYCAEMIA [None]
  - HYPOGLYCAEMIA [None]
